FAERS Safety Report 20880362 (Version 1)
Quarter: 2022Q2

REPORT INFORMATION
  Report Type: Spontaneous
  Country: CA (occurrence: CA)
  Receive Date: 20220526
  Receipt Date: 20220526
  Transmission Date: 20220720
  Serious: Yes (Other)
  Sender: FDA-Public Use
  Company Number: CA-PFIZER INC-202200087184

PATIENT
  Age: 50 Year
  Sex: Female

DRUGS (2)
  1. IBRANCE [Suspect]
     Active Substance: PALBOCICLIB
     Dosage: 125 MG, 1X/DAY, 21 DAYS OUT OF 28
     Route: 048
     Dates: start: 20210901
  2. ZOLADEX [Concomitant]
     Active Substance: GOSERELIN ACETATE
     Dosage: UNK

REACTIONS (4)
  - Pulmonary embolism [Unknown]
  - Pleural effusion [Unknown]
  - Spleen disorder [Unknown]
  - Lung opacity [Unknown]

NARRATIVE: CASE EVENT DATE: 20211201
